FAERS Safety Report 10600123 (Version 1)
Quarter: 2014Q4

REPORT INFORMATION
  Report Type: Spontaneous
  Country: US (occurrence: US)
  Receive Date: 20141122
  Receipt Date: 20141122
  Transmission Date: 20150529
  Serious: Yes (Other)
  Sender: FDA-Public Use
  Company Number: US-DRREDDYS-USA/USA/14/0044536

PATIENT
  Age: 54 Year
  Sex: Female

DRUGS (5)
  1. TRASTUZUMAB [Concomitant]
     Active Substance: TRASTUZUMAB
     Indication: BREAST CANCER METASTATIC
     Route: 065
  2. PACLITAXEL. [Concomitant]
     Active Substance: PACLITAXEL
     Indication: BREAST CANCER METASTATIC
     Route: 065
  3. ZOLEDRONIC ACID. [Suspect]
     Active Substance: ZOLEDRONIC ACID
     Indication: BREAST CANCER METASTATIC
     Route: 065
  4. VINORELBINE [Concomitant]
     Active Substance: VINORELBINE\VINORELBINE TARTRATE
     Indication: BREAST CANCER METASTATIC
     Route: 065
  5. GEMCITABINE [Suspect]
     Active Substance: GEMCITABINE\GEMCITABINE HYDROCHLORIDE
     Indication: BREAST CANCER METASTATIC
     Route: 065

REACTIONS (3)
  - Osteonecrosis of jaw [Unknown]
  - Colitis ulcerative [Recovering/Resolving]
  - Disease progression [Unknown]
